FAERS Safety Report 15699412 (Version 1)
Quarter: 2018Q4

REPORT INFORMATION
  Report Type: Spontaneous
  Country: US (occurrence: US)
  Receive Date: 20181207
  Receipt Date: 20181207
  Transmission Date: 20190205
  Serious: Yes (Other)
  Sender: FDA-Public Use
  Company Number: None

PATIENT
  Age: 89 Year
  Sex: Male
  Weight: 61.2 kg

DRUGS (12)
  1. JANUVIA [Suspect]
     Active Substance: SITAGLIPTIN PHOSPHATE
     Indication: DIABETES MELLITUS
     Route: 048
     Dates: start: 20161016, end: 20181008
  2. CENTRUM SILVER [Concomitant]
     Active Substance: MINERALS\VITAMINS
  3. OXYGEN. [Concomitant]
     Active Substance: OXYGEN
  4. TRIAMCINOLONE 0.01 % [Concomitant]
  5. BETAMETHASONE DP .05% [Concomitant]
  6. FOLIC ACID 1 [Concomitant]
  7. METHOTREXATE 2.5 MG [Concomitant]
     Active Substance: METHOTREXATE
  8. LOSARTAN 50MG [Concomitant]
     Active Substance: LOSARTAN
  9. MUPIROCIN 2% OINTMENT [Concomitant]
     Active Substance: MUPIROCIN
  10. GENERIC TYLENOL [Concomitant]
  11. ADVAIR DISKUS [Concomitant]
     Active Substance: FLUTICASONE PROPIONATE\SALMETEROL XINAFOATE
  12. 81 MG ASPIRIN [Concomitant]
     Active Substance: ASPIRIN

REACTIONS (2)
  - Pemphigoid [None]
  - Autoimmune disorder [None]

NARRATIVE: CASE EVENT DATE: 20180601
